FAERS Safety Report 20937497 (Version 2)
Quarter: 2022Q3

REPORT INFORMATION
  Report Type: Spontaneous
  Country: US (occurrence: US)
  Receive Date: 20220609
  Receipt Date: 20220725
  Transmission Date: 20221026
  Serious: No
  Sender: FDA-Public Use
  Company Number: US-BRISTOL-MYERS SQUIBB COMPANY-2022-047255

PATIENT
  Age: 59 Year
  Sex: Male
  Weight: 97.98 kg

DRUGS (8)
  1. REVLIMID [Suspect]
     Active Substance: LENALIDOMIDE
     Indication: Plasma cell myeloma
     Dosage: FREQUENCY : 21 DAYS ON AND 7 DAYS OFF
     Route: 048
     Dates: start: 20210623, end: 20220522
  2. REVLIMID [Suspect]
     Active Substance: LENALIDOMIDE
     Route: 048
     Dates: start: 201910
  3. ACYCLOVIR [Concomitant]
     Active Substance: ACYCLOVIR
     Indication: Product used for unknown indication
     Route: 065
  4. ELIQUIS [Concomitant]
     Active Substance: APIXABAN
     Indication: Product used for unknown indication
     Route: 065
  5. ZOMETA [Concomitant]
     Active Substance: ZOLEDRONIC ACID
     Indication: Product used for unknown indication
     Route: 065
  6. VITAMIN B12 [Concomitant]
     Active Substance: CYANOCOBALAMIN
     Indication: Product used for unknown indication
     Route: 065
  7. CALCIUM WITH VITAMIN D [CALCIUM PHOSPHATE;CALCIUM SODIUM LACTATE;ERGOC [Concomitant]
     Indication: Product used for unknown indication
     Route: 065
  8. ERGOCALCIFEROL [Concomitant]
     Active Substance: ERGOCALCIFEROL
     Indication: Product used for unknown indication
     Route: 065

REACTIONS (2)
  - Immune system disorder [Unknown]
  - White blood cell count decreased [Unknown]
